FAERS Safety Report 6870636-7 (Version None)
Quarter: 2010Q3

REPORT INFORMATION
  Report Type: 
  Country: None (occurrence: None)
  Receive Date: 20100723
  Receipt Date: 20100714
  Transmission Date: 20110219
  Serious: Yes (Other)
  Sender: FDA-Public Use
  Company Number: PHHY2010BR35331

PATIENT
  Sex: Female

DRUGS (2)
  1. FORASEQ [Suspect]
     Indication: EMPHYSEMA
     Dosage: INHALATION OF 1 CAPSULE OF EACH SUBSTANCE TWICE A DAY (IN THE MORNING AND AT NIGHT).
  2. BAMIFIX [Concomitant]
     Indication: EMPHYSEMA
     Dosage: 1 DRAGEE EVERY 12 HOURS (IN THE MORNING AND AT NIGHT)
     Route: 048

REACTIONS (5)
  - DRUG DOSE OMISSION [None]
  - EMPHYSEMA [None]
  - FATIGUE [None]
  - SELF-MEDICATION [None]
  - THYROID DISORDER [None]
